FAERS Safety Report 8417152-9 (Version None)
Quarter: 2012Q2

REPORT INFORMATION
  Report Type: 
  Country: None (occurrence: None)
  Receive Date: 20120606
  Receipt Date: 20120530
  Transmission Date: 20120825
  Serious: Yes (Death)
  Sender: FDA-Public Use
  Company Number: NL-ACTELION-A-CH2012-66261

PATIENT
  Sex: Male
  Weight: 75 kg

DRUGS (5)
  1. FUROSEMIDE [Concomitant]
  2. TRACLEER [Suspect]
     Indication: DIGITAL ULCER
     Dosage: UNK , UNK
     Route: 048
     Dates: end: 20120523
  3. METHOTREXATE [Concomitant]
  4. CIPROFLOXACIN HCL [Concomitant]
  5. CEFTRIAXONE [Concomitant]

REACTIONS (1)
  - RESPIRATORY FAILURE [None]
